FAERS Safety Report 6457176-4 (Version None)
Quarter: 2009Q4

REPORT INFORMATION
  Report Type: 
  Country: None (occurrence: None)
  Receive Date: 20091125
  Receipt Date: 20091119
  Transmission Date: 20100525
  Serious: Yes (Other)
  Sender: FDA-Public Use
  Company Number: US-JNJCH-2009030466

PATIENT
  Sex: Male

DRUGS (1)
  1. NEOSPORIN LIP HEALTH DAILY HYDRATION THERAPY [Suspect]
     Indication: CHAPPED LIPS
     Dosage: TEXT:ENOUGH TO COVER UNSPECIFIED
     Route: 061
     Dates: start: 20090811, end: 20090812

REACTIONS (2)
  - APPLICATION SITE SWELLING [None]
  - SPEECH DISORDER [None]
